FAERS Safety Report 9928003 (Version 1)
Quarter: 2014Q1

REPORT INFORMATION
  Report Type: Spontaneous
  Country: US (occurrence: US)
  Receive Date: 20140227
  Receipt Date: 20140227
  Transmission Date: 20141002
  Serious: No
  Sender: FDA-Public Use
  Company Number: US-PFIZER INC-2014054635

PATIENT
  Sex: Female

DRUGS (1)
  1. CELEBREX [Suspect]
     Indication: LIMB DISCOMFORT
     Dosage: 200 MG, 1X/DAY
     Dates: start: 20140222

REACTIONS (9)
  - Off label use [Unknown]
  - Abdominal discomfort [Unknown]
  - Diarrhoea [Unknown]
  - Urticaria [Recovering/Resolving]
  - Flushing [Recovering/Resolving]
  - Burning sensation [Recovering/Resolving]
  - Rash [Recovering/Resolving]
  - Erythema [Recovering/Resolving]
  - Discomfort [Unknown]
